FAERS Safety Report 7326702-5 (Version None)
Quarter: 2011Q1

REPORT INFORMATION
  Report Type: 
  Country: None (occurrence: None)
  Receive Date: 20110216
  Receipt Date: 20110209
  Transmission Date: 20110831
  Serious: Yes (Hospitalization, Disabling, Other)
  Sender: FDA-Public Use
  Company Number: 2010SP004869

PATIENT
  Age: 48 Year
  Sex: Female
  Weight: 72.5755 kg

DRUGS (1)
  1. NUVARING [Suspect]
     Indication: CONTRACEPTION
     Dates: start: 20040101, end: 20080501

REACTIONS (5)
  - HYPERTENSION [None]
  - PULMONARY EMBOLISM [None]
  - EMBOLIC STROKE [None]
  - WEIGHT DECREASED [None]
  - HAEMATURIA [None]
